FAERS Safety Report 12077957 (Version 3)
Quarter: 2016Q2

REPORT INFORMATION
  Report Type: Spontaneous
  Country: US (occurrence: US)
  Receive Date: 20160215
  Receipt Date: 20160504
  Transmission Date: 20160815
  Serious: Yes (Other)
  Sender: FDA-Public Use
  Company Number: US-BAYER-2016-029218

PATIENT
  Age: 45 Year
  Sex: Female
  Weight: 60.32 kg

DRUGS (14)
  1. MIRENA [Suspect]
     Active Substance: LEVONORGESTREL
     Indication: POSTMENOPAUSAL HAEMORRHAGE
     Dosage: 20 MCG/24HR, CONT
     Route: 015
     Dates: start: 20160118
  2. PROVERA [Concomitant]
     Active Substance: MEDROXYPROGESTERONE ACETATE
     Route: 048
  3. SYNTHROID [Concomitant]
     Active Substance: LEVOTHYROXINE SODIUM
     Route: 048
  4. MIRENA [Suspect]
     Active Substance: LEVONORGESTREL
     Indication: CONTRACEPTION
     Dosage: 20 MCG/24HR, CONT
     Route: 015
     Dates: start: 20160108, end: 20160118
  5. ASPIRIN. [Concomitant]
     Active Substance: ASPIRIN
     Route: 048
  6. BETADINE [Concomitant]
     Active Substance: POVIDONE-IODINE
     Dosage: UNK
     Dates: start: 20160118, end: 20160118
  7. PLAVIX [Concomitant]
     Active Substance: CLOPIDOGREL BISULFATE
     Route: 048
  8. VITAMIN B12 + FOLIC ACID [Concomitant]
     Route: 048
  9. CAPTOPRIL. [Concomitant]
     Active Substance: CAPTOPRIL
     Dosage: UNK
  10. IRON [IRON] [Concomitant]
     Active Substance: IRON
     Route: 048
  11. VITAMIN D3 [Concomitant]
     Active Substance: CHOLECALCIFEROL
     Route: 048
  12. BETADINE [Concomitant]
     Active Substance: POVIDONE-IODINE
     Dosage: UNK
     Dates: start: 20160108, end: 20160108
  13. ATORVASTATIN [Concomitant]
     Active Substance: ATORVASTATIN
     Route: 048
  14. NYSTADERMAL [Concomitant]
     Route: 062

REACTIONS (17)
  - Cystocele [None]
  - Device use error [None]
  - Metrorrhagia [None]
  - Vaginal haemorrhage [None]
  - Haematocrit decreased [None]
  - Blood thyroid stimulating hormone increased [None]
  - Vulvovaginal discomfort [None]
  - Red blood cell count decreased [None]
  - Rectocele [None]
  - Abdominal pain lower [None]
  - Complication associated with device [None]
  - Genital haemorrhage [None]
  - Vulvovaginal pain [None]
  - Device expulsion [None]
  - Hypomenorrhoea [None]
  - Haemoglobin decreased [None]
  - Uterine prolapse [None]

NARRATIVE: CASE EVENT DATE: 2016
